FAERS Safety Report 4836130-X (Version None)
Quarter: 2005Q4

REPORT INFORMATION
  Report Type: 
  Country: None (occurrence: None)
  Receive Date: 20051123
  Receipt Date: 20051110
  Transmission Date: 20060501
  Serious: Yes (Hospitalization, Disabling)
  Sender: FDA-Public Use
  Company Number: SE-BOEHRINGER INGELHEIM PHARMACEUTICALS, INC.-2005-UK-02318UK

PATIENT
  Sex: Female

DRUGS (4)
  1. TIOTROPIUM (00015/0190/A) [Suspect]
     Indication: CHRONIC OBSTRUCTIVE PULMONARY DISEASE
     Dosage: 18 MCG ONCE DAILY
     Route: 055
     Dates: start: 20031104
  2. SALMETEROL XINAFOATE [Concomitant]
     Indication: CHRONIC OBSTRUCTIVE PULMONARY DISEASE
     Dosage: 50 MCG TWICE DAILY
     Route: 055
     Dates: start: 20031021, end: 20031103
  3. SALMETEROL XINAFOATE [Concomitant]
     Route: 055
     Dates: start: 20031104
  4. PREDNISOLONE [Concomitant]
     Dosage: 30 MG ONCE DAILY
     Route: 048
     Dates: start: 20031022, end: 20031103

REACTIONS (2)
  - FALL [None]
  - FEMORAL NECK FRACTURE [None]
